FAERS Safety Report 11720966 (Version 1)
Quarter: 2015Q4

REPORT INFORMATION
  Report Type: Spontaneous
  Country: US (occurrence: US)
  Receive Date: 20151110
  Receipt Date: 20151110
  Transmission Date: 20160304
  Serious: No
  Sender: FDA-Public Use
  Company Number: US-SA-2015SA153640

PATIENT
  Age: 73 Year
  Sex: Female

DRUGS (4)
  1. PRALUENT [Suspect]
     Active Substance: ALIROCUMAB
     Dosage: FREQUENCY-EVERY 2 WEEKS
     Route: 065
  2. ALIROCUMAB PREFILLED PEN [Concomitant]
     Dosage: EVERY TWO WEEK
     Dates: start: 201509
  3. ALIROCUMAB PREFILLED PEN [Concomitant]
     Dosage: EVERY TWO WEEK
  4. PRALUENT [Suspect]
     Active Substance: ALIROCUMAB
     Dosage: FREQUENCY-EVERY 2 WEEKS
     Route: 065
     Dates: start: 201509

REACTIONS (1)
  - Headache [Unknown]

NARRATIVE: CASE EVENT DATE: 201509
